FAERS Safety Report 12818008 (Version 2)
Quarter: 2017Q1

REPORT INFORMATION
  Report Type: Spontaneous
  Country: US (occurrence: US)
  Receive Date: 20161005
  Receipt Date: 20170206
  Transmission Date: 20170428
  Serious: No
  Sender: FDA-Public Use
  Company Number: US-LUNDBECK-DKLU2019449

PATIENT
  Age: 66 Year
  Sex: Female

DRUGS (2)
  1. NORTHERA [Suspect]
     Active Substance: DROXIDOPA
     Route: 065
     Dates: start: 201609
  2. NORTHERA [Suspect]
     Active Substance: DROXIDOPA
     Indication: PRODUCT USED FOR UNKNOWN INDICATION
     Dosage: SCHEDULE C - NO TITRATION
     Route: 065
     Dates: start: 20160831

REACTIONS (6)
  - Constipation [Unknown]
  - Feeling of body temperature change [Unknown]
  - Headache [Unknown]
  - Dizziness [Unknown]
  - Drug interaction [Unknown]
  - Insomnia [Unknown]

NARRATIVE: CASE EVENT DATE: 20160913
